FAERS Safety Report 24438721 (Version 1)
Quarter: 2024Q4

REPORT INFORMATION
  Report Type: Spontaneous
  Country: US (occurrence: US)
  Receive Date: 20241015
  Receipt Date: 20241015
  Transmission Date: 20250115
  Serious: No
  Sender: TEVA
  Company Number: US-TEVA-VS-3248841

PATIENT
  Sex: Female

DRUGS (20)
  1. METOPROLOL SUCCINATE [Suspect]
     Active Substance: METOPROLOL SUCCINATE
     Indication: Blood pressure measurement
     Dosage: ONE TABLET
     Route: 065
     Dates: start: 202308
  2. METOPROLOL SUCCINATE [Suspect]
     Active Substance: METOPROLOL SUCCINATE
     Indication: Blood pressure measurement
     Dosage: START DATE: 16 YEARS AGO
     Route: 065
  3. CALTRATE [Concomitant]
     Active Substance: CALCIUM CARBONATE
     Indication: Osteoporosis
     Dosage: 600MG PLUS D3 THE MINERAL TWICE PER DAY SO 1200MG ?PER DAY
     Route: 065
  4. Centrum Silver for women 50 plus [Concomitant]
     Indication: Product used for unknown indication
     Dosage: BEGAN THAT PROBABLY 20 YEARS,  TAKES ONE TABLET IN THE MORNING
     Route: 065
  5. OMEPRAZOLE [Concomitant]
     Active Substance: OMEPRAZOLE
     Indication: Gastrooesophageal reflux disease
     Dosage: ONE TABLET IN THE MORNING
     Route: 065
  6. VENLAFAXINE [Concomitant]
     Active Substance: VENLAFAXINE HYDROCHLORIDE
     Indication: Nervousness
     Dosage: START DATE: 16 YEARS AGO
     Route: 065
  7. VENLAFAXINE [Concomitant]
     Active Substance: VENLAFAXINE HYDROCHLORIDE
     Indication: Nervousness
     Dosage: 37.5MG ONE TABLET IN THE EVENING, STARTED THAT WITH MENOPAUSE
     Route: 065
  8. SIMVASTATIN [Concomitant]
     Active Substance: SIMVASTATIN
     Indication: Blood cholesterol increased
     Dosage: ONE TABLET IN THE EVENING, BEGAN THAT PROBABLY 10 YEARS AGO
     Route: 065
  9. PROLIA [Concomitant]
     Active Substance: DENOSUMAB
     Indication: Product used for unknown indication
     Dosage: ONE INJECTION TWICE PER YEAR, STARTED IT PROBABLY 10 YEARS AGO FOR BONE HEALTH RELATED ?TO MULTIP...
     Route: 065
  10. RESTASIS [Concomitant]
     Active Substance: CYCLOSPORINE
     Indication: Dry eye
     Dosage: ONE DROP PER EYE TWICE A DAY, BEGAN THAT 15 YEARS AGO
     Route: 065
  11. ACYCLOVIR [Concomitant]
     Active Substance: ACYCLOVIR
     Indication: Antiviral treatment
     Route: 065
     Dates: start: 202303
  12. XARELTO [Concomitant]
     Active Substance: RIVAROXABAN
     Indication: Anticoagulant therapy
     Route: 065
  13. REVLIMID [Concomitant]
     Active Substance: LENALIDOMIDE
     Indication: Product used for unknown indication
     Dosage: TAKES ONE 10MG TABLET PER DAY FOR 21 DAYS ON AND 7 DAYS OFF
     Route: 065
     Dates: start: 202303
  14. DARATUMUMAB [Concomitant]
     Active Substance: DARATUMUMAB
     Indication: Product used for unknown indication
     Dosage: ONE INJECTION
     Route: 065
     Dates: start: 2023
  15. COMIRNATY (TOZINAMERAN) [Suspect]
     Active Substance: TOZINAMERAN
     Indication: Product used for unknown indication
     Dosage: VACCINE, 30MCG/0.3ML GIVEN IN THE LEFT ARM
     Route: 065
     Dates: start: 20240913
  16. TYLENOL [Concomitant]
     Active Substance: ACETAMINOPHEN
     Indication: Headache
     Dosage: TAKES EXTRA STRENGTH
     Route: 065
  17. BENADRYL [Concomitant]
     Active Substance: DIPHENHYDRAMINE HYDROCHLORIDE
     Indication: Hypersensitivity
     Dosage: AT NIGHT AND TAKES TWO OF THOSE ALMOST EVERY NIGHT FOR ALLERGIES AS WELL AS TO SLEEP
     Route: 065
  18. FLONASE [Concomitant]
     Active Substance: FLUTICASONE PROPIONATE
     Indication: Hypersensitivity
     Dosage: DOES TWO SPRAYS PER DAY PER NOSTRIL; AS NEEDED
     Route: 045
  19. MIRALAX [Concomitant]
     Active Substance: POLYETHYLENE GLYCOL 3350
     Indication: Constipation
     Dosage: AS NEEDED
     Route: 065
  20. IMODIUM [Concomitant]
     Active Substance: LOPERAMIDE HYDROCHLORIDE
     Indication: Diarrhoea
     Route: 065

REACTIONS (5)
  - Rash [Unknown]
  - Nausea [Recovered/Resolved]
  - Diarrhoea [Recovered/Resolved]
  - Pain in extremity [Recovered/Resolved]
  - Fatigue [Recovered/Resolved]

NARRATIVE: CASE EVENT DATE: 20240901
